FAERS Safety Report 7365665-3 (Version None)
Quarter: 2011Q1

REPORT INFORMATION
  Report Type: 
  Country: None (occurrence: None)
  Receive Date: 20110225
  Receipt Date: 20101215
  Transmission Date: 20110831
  Serious: No
  Sender: FDA-Public Use
  Company Number: 320413

PATIENT
  Age: 52 Year
  Sex: Male

DRUGS (8)
  1. ZOLOFT [Concomitant]
  2. ACTOS [Concomitant]
  3. METFORMIN ER (METFORMIN HYDROCHLORIDE) [Concomitant]
  4. VICTOZA [Suspect]
     Indication: PRODUCT USED FOR UNKNOWN INDICATION
     Dosage: 0.6 MG, QD, SUBCUTANEOUS
     Route: 058
  5. ASPIRIN [Concomitant]
  6. LOTREL [Concomitant]
  7. VYTORIN [Concomitant]
  8. LEVOTHYROXINE (LEVOTHYROXINE) [Concomitant]

REACTIONS (1)
  - FATIGUE [None]
